FAERS Safety Report 6399254-4 (Version None)
Quarter: 2009Q4

REPORT INFORMATION
  Report Type: 
  Country: None (occurrence: None)
  Receive Date: 20091014
  Receipt Date: 20091005
  Transmission Date: 20100525
  Serious: Yes (Life-Threatening)
  Sender: FDA-Public Use
  Company Number: GB-RANBAXY-2009RR-28442

PATIENT
  Age: 53 Year
  Sex: Female

DRUGS (2)
  1. PARACETAMOL [Suspect]
     Dosage: 500 MG, UNK
     Route: 065
  2. CODEINE [Suspect]
     Dosage: 30 MG, UNK
     Route: 065

REACTIONS (5)
  - BLISTER [None]
  - DEPRESSED LEVEL OF CONSCIOUSNESS [None]
  - INTENTIONAL DRUG MISUSE [None]
  - RESPIRATORY FAILURE [None]
  - THERAPEUTIC AGENT TOXICITY [None]
